FAERS Safety Report 10153325 (Version 1)
Quarter: 2014Q2

REPORT INFORMATION
  Report Type: Spontaneous
  Country: DE (occurrence: DE)
  Receive Date: 20140505
  Receipt Date: 20140505
  Transmission Date: 20141212
  Serious: Yes (Life-Threatening, Hospitalization, Other)
  Sender: FDA-Public Use
  Company Number: DE-ACTAVIS-2014-08919

PATIENT
  Age: 30 Year
  Sex: Female

DRUGS (3)
  1. OXYCODONE (UNKNOWN) [Suspect]
     Indication: DYSPHORIA
     Dosage: 8?10 AMPULES A DAY (80-100 MG DAILY)
     Route: 058
     Dates: start: 2011
  2. OXYCODONE (UNKNOWN) [Suspect]
     Indication: ABDOMINAL PAIN
     Dosage: 30 MG, DAILY
     Route: 058
  3. OXYCODONE (UNKNOWN) [Suspect]
     Dosage: 10 MG, PRN
     Route: 058

REACTIONS (4)
  - Respiratory depression [Unknown]
  - Overdose [Not Recovered/Not Resolved]
  - Drug abuse [Not Recovered/Not Resolved]
  - Drug dependence [Not Recovered/Not Resolved]
